FAERS Safety Report 7398126-6 (Version None)
Quarter: 2011Q2

REPORT INFORMATION
  Report Type: 
  Country: None (occurrence: None)
  Receive Date: 20110406
  Receipt Date: 20110305
  Transmission Date: 20111010
  Serious: No
  Sender: FDA-Public Use
  Company Number: US-B.I. PHARMACEUTICALS,INC./RIDGEFIELD-2011-BP-07270BP

PATIENT
  Sex: Male

DRUGS (8)
  1. OMEPRAZOLE [Concomitant]
     Indication: HYPERCHLORHYDRIA
  2. PRADAXA [Suspect]
     Indication: ATRIAL FIBRILLATION
     Dates: start: 20110101
  3. PROSCAR [Concomitant]
     Indication: PROSTATOMEGALY
  4. ENABLEX [Concomitant]
  5. FLOMAX [Suspect]
     Indication: BENIGN PROSTATIC HYPERPLASIA
     Dosage: 0.4 MG
     Route: 048
  6. ZOCOR [Concomitant]
     Indication: BLOOD CHOLESTEROL
  7. PROSCAR [Concomitant]
     Indication: BLADDER DISORDER
  8. CARBIDOPA LEVIDOPA [Concomitant]
     Indication: PARKINSON'S DISEASE

REACTIONS (6)
  - FLATULENCE [None]
  - ABDOMINAL PAIN UPPER [None]
  - RECTAL HAEMORRHAGE [None]
  - DIARRHOEA [None]
  - BLADDER MASS [None]
  - RECTAL DISCHARGE [None]
